FAERS Safety Report 5836478 (Version 5)
Quarter: 2013Q2

REPORT INFORMATION
  Report Type: Spontaneous
  Country: GB (occurrence: GB)
  Receive Date: 20050713
  Receipt Date: 20130424
  Transmission Date: 20140414
  Serious: Yes (Hospitalization, Other)
  Sender: FDA-Public Use
  Company Number: GB-JNJFOC-20050701933

PATIENT
  Age: 7 Year
  Sex: Female
  Weight: 30 kg

DRUGS (9)
  1. CHILDREN^S IBUPROFEN [Suspect]
     Route: 048
  2. CHILDREN^S IBUPROFEN [Suspect]
     Indication: ABDOMINAL PAIN
     Route: 048
     Dates: start: 20041204, end: 20041204
  3. DICLOFENAC [Suspect]
     Indication: ABDOMINAL PAIN
     Route: 054
     Dates: start: 20041202, end: 20041202
  4. INDOMETACIN [Suspect]
     Indication: PRODUCT USED FOR UNKNOWN INDICATION
     Route: 065
  5. CEFTRIAXONE [Concomitant]
     Indication: URINARY TRACT INFECTION
     Route: 042
     Dates: start: 20041203, end: 20041203
  6. NIFEDIPINE [Concomitant]
     Indication: HYPERTENSION
  7. ONDANSETRON [Concomitant]
     Indication: VOMITING
     Route: 042
     Dates: start: 20041203, end: 20041203
  8. PARACETAMOL [Concomitant]
     Indication: PYREXIA
     Route: 048
     Dates: start: 20041202, end: 20041202
  9. PARACETAMOL [Concomitant]
     Indication: PYREXIA
     Route: 054
     Dates: start: 20041202, end: 20041204

REACTIONS (3)
  - Renal failure acute [Recovered/Resolved]
  - Renal tubular necrosis [Recovered/Resolved]
  - Dialysis [None]
